FAERS Safety Report 15291174 (Version 2)
Quarter: 2018Q3

REPORT INFORMATION
  Report Type: Spontaneous
  Country: US (occurrence: US)
  Receive Date: 20180817
  Receipt Date: 20180821
  Transmission Date: 20181010
  Serious: No
  Sender: FDA-Public Use
  Company Number: US-SA-2018SA222869

PATIENT
  Age: 58 Year
  Sex: Male

DRUGS (3)
  1. PRALUENT [Suspect]
     Active Substance: ALIROCUMAB
     Dosage: 150 MG
     Route: 058
     Dates: start: 20180806
  2. REPATHA [Concomitant]
     Active Substance: EVOLOCUMAB
  3. ALIROCUMAB PREFILLED PEN [Suspect]
     Active Substance: ALIROCUMAB
     Dosage: UNK
     Dates: start: 20180806

REACTIONS (6)
  - Pyrexia [Not Recovered/Not Resolved]
  - Injection site pain [Not Recovered/Not Resolved]
  - Impaired work ability [Unknown]
  - Injection site pruritus [Not Recovered/Not Resolved]
  - Sinus arrest [Not Recovered/Not Resolved]
  - Headache [Unknown]
